FAERS Safety Report 20500107 (Version 1)
Quarter: 2022Q1

REPORT INFORMATION
  Report Type: Other
  Country: US (occurrence: None)
  Receive Date: 20220222
  Receipt Date: 20220222
  Transmission Date: 20220423
  Serious: Yes (Hospitalization)
  Sender: FDA-Public Use
  Company Number: US-ROCHE-3023172

PATIENT
  Age: 50 Year
  Sex: Female
  Weight: 99.880 kg

DRUGS (6)
  1. OCREVUS [Suspect]
     Active Substance: OCRELIZUMAB
     Indication: Relapsing-remitting multiple sclerosis
     Dosage: YES: 300 MG DAY 1 AND DAY 15
     Route: 065
     Dates: start: 20190404
  2. LAMOTRIGINE [Concomitant]
     Active Substance: LAMOTRIGINE
  3. LITHIUM [Concomitant]
     Active Substance: LITHIUM
  4. SEROQUEL [Concomitant]
     Active Substance: QUETIAPINE FUMARATE
  5. EFFEXOR [Concomitant]
     Active Substance: VENLAFAXINE HYDROCHLORIDE
  6. ADDERALL XR [Concomitant]
     Active Substance: AMPHETAMINE ASPARTATE\AMPHETAMINE SULFATE\DEXTROAMPHETAMINE SACCHARATE\DEXTROAMPHETAMINE SULFATE

REACTIONS (4)
  - Suspected COVID-19 [Recovered/Resolved]
  - Clostridium difficile infection [Recovered/Resolved]
  - Localised infection [Recovered/Resolved]
  - General physical health deterioration [Recovered/Resolved]

NARRATIVE: CASE EVENT DATE: 20191004
